FAERS Safety Report 6590247-0 (Version None)
Quarter: 2010Q1

REPORT INFORMATION
  Report Type: 
  Country: None (occurrence: None)
  Receive Date: 20100212
  Receipt Date: 20100127
  Transmission Date: 20100710
  Serious: Yes (Other)
  Sender: FDA-Public Use
  Company Number: 230139J10USA

PATIENT
  Age: 65 Year
  Sex: Male
  Weight: 92 kg

DRUGS (9)
  1. REBIF [Suspect]
     Indication: MULTIPLE SCLEROSIS
     Dosage: 44 MCG, 3 IN 1 WEEKS, SUBCUTANEOUS
     Route: 058
     Dates: start: 20011001
  2. TERAZOSIN HCL [Concomitant]
  3. LOPID [Concomitant]
  4. ATENOLOL [Concomitant]
  5. TRAZODONE HCL [Concomitant]
  6. RANITIDINE (RANITIDINE /00550801/) [Concomitant]
  7. IRON (IRON) [Concomitant]
  8. LISINOPRIL [Concomitant]
  9. ASPIRIN [Concomitant]

REACTIONS (5)
  - CHEST DISCOMFORT [None]
  - CHEST PAIN [None]
  - CORONARY ARTERY OCCLUSION [None]
  - DYSPNOEA [None]
  - FATIGUE [None]
